FAERS Safety Report 8529594-1 (Version None)
Quarter: 2012Q3

REPORT INFORMATION
  Report Type: 
  Country: None (occurrence: None)
  Receive Date: 20120723
  Receipt Date: 20120709
  Transmission Date: 20120928
  Serious: Yes (Other)
  Sender: FDA-Public Use
  Company Number: US-MYLANLABS-2012S1013924

PATIENT
  Age: 36 Year
  Sex: Female

DRUGS (9)
  1. ISOFLURANE [Suspect]
     Indication: ANAESTHESIA
  2. REMIFENTANIL [Suspect]
     Indication: ANAESTHESIA
  3. LEVOTHYROXINE SODIUM [Suspect]
     Indication: HYPOTHYROIDISM
  4. OXYGEN [Concomitant]
     Indication: ANAESTHESIA
     Dosage: 1 L/MIN WITH AIR 3 L/MIN
  5. NEO-CORTEF [Concomitant]
     Indication: PROPHYLAXIS
  6. THIAMYLAL SODIUM [Concomitant]
     Indication: INDUCTION OF ANAESTHESIA
  7. DIAZEPAM [Concomitant]
  8. ROCURONIUM BROMIDE [Concomitant]
     Indication: INDUCTION OF ANAESTHESIA
  9. RISPERIDONE [Suspect]

REACTIONS (5)
  - ELECTROCARDIOGRAM ST SEGMENT DEPRESSION [None]
  - BLOOD PRESSURE DECREASED [None]
  - PSYCHIATRIC SYMPTOM [None]
  - SINUS TACHYCARDIA [None]
  - VASCULAR FRAGILITY [None]
